FAERS Safety Report 5363713-3 (Version None)
Quarter: 2007Q2

REPORT INFORMATION
  Report Type: 
  Country: None (occurrence: None)
  Receive Date: 20070620
  Receipt Date: 20070611
  Transmission Date: 20071010
  Serious: Yes (Hospitalization, Disabling)
  Sender: FDA-Public Use
  Company Number: US-ROCHE-497036

PATIENT
  Age: 55 Year
  Sex: Male
  Weight: 74.8 kg

DRUGS (7)
  1. PEGASYS [Suspect]
     Route: 058
     Dates: start: 20061122, end: 20061214
  2. PEGASYS [Suspect]
     Route: 058
     Dates: start: 20070110, end: 20070216
  3. COPEGUS [Suspect]
     Route: 048
     Dates: start: 20061122, end: 20061214
  4. COPEGUS [Suspect]
     Route: 048
     Dates: start: 20070110, end: 20070216
  5. ZESTRIL [Concomitant]
     Indication: HYPERTENSION
     Route: 048
     Dates: start: 20061128
  6. MOBIC [Concomitant]
     Indication: ARTHRITIS
     Route: 048
     Dates: start: 20060620
  7. NEXIUM [Concomitant]
     Route: 048
     Dates: start: 20060418

REACTIONS (5)
  - ALOPECIA [None]
  - CORONARY ARTERY DISEASE [None]
  - NEUTROPENIA [None]
  - SEBORRHOEIC DERMATITIS [None]
  - VITILIGO [None]
